FAERS Safety Report 6574714-1 (Version None)
Quarter: 2010Q1

REPORT INFORMATION
  Report Type: 
  Country: None (occurrence: None)
  Receive Date: 20100209
  Receipt Date: 20100203
  Transmission Date: 20100710
  Serious: Yes (Death, Hospitalization, Other)
  Sender: FDA-Public Use
  Company Number: PHHY2010BR05886

PATIENT
  Age: 92 Year
  Sex: Female

DRUGS (2)
  1. EXELON [Suspect]
     Route: 062
  2. ANTIHYPERTENSIVES [Concomitant]
     Indication: HYPERTENSION

REACTIONS (5)
  - CEREBROVASCULAR ACCIDENT [None]
  - DEATH [None]
  - FALL [None]
  - LIMB OPERATION [None]
  - LOWER LIMB FRACTURE [None]
